FAERS Safety Report 13895291 (Version 1)
Quarter: 2017Q3

REPORT INFORMATION
  Report Type: Spontaneous
  Country: US (occurrence: US)
  Receive Date: 20170818
  Receipt Date: 20170818
  Transmission Date: 20171127
  Serious: Yes (Other)
  Sender: FDA-Public Use
  Company Number: None

PATIENT
  Age: 8 Year
  Sex: Male
  Weight: 27 kg

DRUGS (1)
  1. AMOXICILLIN 875 MG [Suspect]
     Active Substance: AMOXICILLIN
     Indication: EAR INFECTION
     Dosage: ?          QUANTITY:1 CAPSULE(S);?
     Route: 048
     Dates: start: 20170817, end: 20170818

REACTIONS (4)
  - Restlessness [None]
  - Feeling jittery [None]
  - Insomnia [None]
  - Unevaluable event [None]

NARRATIVE: CASE EVENT DATE: 20170817
